FAERS Safety Report 19634485 (Version 1)
Quarter: 2021Q3

REPORT INFORMATION
  Report Type: Spontaneous
  Country: US (occurrence: US)
  Receive Date: 20210729
  Receipt Date: 20210729
  Transmission Date: 20211014
  Serious: No
  Sender: FDA-Public Use
  Company Number: US-PARATEK PHARMACEUTICALS, INC.-2021PTK00056

PATIENT
  Age: 64 Year
  Sex: Male
  Weight: 68.03 kg

DRUGS (16)
  1. NUZYRA [Suspect]
     Active Substance: OMADACYCLINE
     Indication: ATYPICAL PNEUMONIA
     Dosage: 450 MG, 1X/DAY
     Route: 048
     Dates: start: 20210425, end: 20210426
  2. NUZYRA [Suspect]
     Active Substance: OMADACYCLINE
     Dosage: 300 MG, 1X/DAY
     Route: 048
     Dates: start: 20210427, end: 20210510
  3. NORVASC [Concomitant]
     Active Substance: AMLODIPINE BESYLATE
  4. BACTRIM [Suspect]
     Active Substance: SULFAMETHOXAZOLE\TRIMETHOPRIM
     Indication: ATYPICAL PNEUMONIA
     Dosage: UNK
     Dates: start: 2021, end: 20210509
  5. PROSCAR [Concomitant]
     Active Substance: FINASTERIDE
  6. KENALOG [Concomitant]
     Active Substance: TRIAMCINOLONE ACETONIDE
     Dosage: UNK, 1X/YEAR IN THE SPRING
  7. TYGACIL [Suspect]
     Active Substance: TIGECYCLINE
     Dosage: 25 MG, 2X/DAY
     Dates: start: 202104
  8. ZOFRAN [Concomitant]
     Active Substance: ONDANSETRON HYDROCHLORIDE
     Dosage: UNK
  9. TYGACIL [Suspect]
     Active Substance: TIGECYCLINE
     Indication: ATYPICAL PNEUMONIA
     Dosage: 50 MG, 2X/DAY
     Dates: end: 202104
  10. ADVAIR HFA [Concomitant]
     Active Substance: FLUTICASONE PROPIONATE\SALMETEROL XINAFOATE
     Dosage: 2 DOSAGE UNITS, 2X/DAY
  11. AMIKACIN. [Concomitant]
     Active Substance: AMIKACIN
     Dosage: 1500 MG, 3X/WEEK
  12. CLARITIN [Concomitant]
     Active Substance: LORATADINE
     Dosage: 10 MG, 1X/DAY
  13. LIPITOR [Concomitant]
     Active Substance: ATORVASTATIN CALCIUM
  14. ALBUTEROL RESCUE INHALER [Concomitant]
     Dosage: UNK, AS NEEDED
  15. ALBUTEROL AEROSOL TREATMENT [Concomitant]
     Dosage: UNK, 2X/DAY
  16. FLONASE [Concomitant]
     Active Substance: FLUTICASONE PROPIONATE
     Dosage: UNK, 1X/DAY

REACTIONS (4)
  - Vomiting [Recovered/Resolved]
  - Incorrect product administration duration [Recovered/Resolved]
  - Decreased appetite [Not Recovered/Not Resolved]
  - Nausea [Not Recovered/Not Resolved]

NARRATIVE: CASE EVENT DATE: 2021
